FAERS Safety Report 12176558 (Version 1)
Quarter: 2016Q1

REPORT INFORMATION
  Report Type: Spontaneous
  Country: US (occurrence: US)
  Receive Date: 20160314
  Receipt Date: 20160314
  Transmission Date: 20160526
  Serious: No
  Sender: FDA-Public Use
  Company Number: US-AKORN PHARMACEUTICALS-2015AKN00444

PATIENT
  Age: 39 Year
  Sex: Female

DRUGS (3)
  1. MYORISAN [Suspect]
     Active Substance: ISOTRETINOIN
     Dosage: 40 MG, 2X/DAY
     Route: 048
     Dates: start: 20150312, end: 201505
  2. MYORISAN [Suspect]
     Active Substance: ISOTRETINOIN
     Indication: ACNE
     Dosage: 40 MG, 1X/DAY
     Route: 048
     Dates: start: 20150209, end: 20150311
  3. MYORISAN [Suspect]
     Active Substance: ISOTRETINOIN
     Dosage: 40 MG, 2X/DAY
     Route: 048
     Dates: start: 201505, end: 20150528

REACTIONS (10)
  - Lip dry [Recovered/Resolved]
  - Eye discharge [Recovered/Resolved]
  - Dry eye [Recovered/Resolved]
  - Pain in extremity [Recovered/Resolved]
  - Joint stiffness [Recovered/Resolved]
  - Scab [Recovered/Resolved]
  - Vision blurred [Recovered/Resolved]
  - Eyelid margin crusting [Recovered/Resolved]
  - Gait disturbance [Recovered/Resolved]
  - Nasal dryness [Recovered/Resolved]

NARRATIVE: CASE EVENT DATE: 201505
